FAERS Safety Report 5063827-1 (Version None)
Quarter: 2006Q3

REPORT INFORMATION
  Report Type: 
  Country: None (occurrence: None)
  Receive Date: 20060726
  Receipt Date: 20060726
  Transmission Date: 20061208
  Serious: Yes (Hospitalization)
  Sender: FDA-Public Use
  Company Number: None

PATIENT
  Sex: Male
  Weight: 88 kg

DRUGS (1)
  1. PEG-L-ASPARAGINASE (K-H) [Suspect]
     Dosage: 5140 IU

REACTIONS (5)
  - CAECITIS [None]
  - CEREBRAL THROMBOSIS [None]
  - COAGULOPATHY [None]
  - GRAND MAL CONVULSION [None]
  - PANCREATITIS [None]
